FAERS Safety Report 24866230 (Version 1)
Quarter: 2025Q1

REPORT INFORMATION
  Report Type: Spontaneous
  Country: US (occurrence: US)
  Receive Date: 20250121
  Receipt Date: 20250121
  Transmission Date: 20250409
  Serious: No
  Sender: CURRAX PHARMACEUTICALS
  Company Number: US-CURRAX PHARMACEUTICALS LLC-US-2023CUR001643

PATIENT
  Age: 52 Year
  Sex: Male

DRUGS (4)
  1. CONTRAVE [Suspect]
     Active Substance: BUPROPION HYDROCHLORIDE\NALTREXONE HYDROCHLORIDE
     Indication: Product used for unknown indication
     Dosage: STRENGTH 8/90 MG, WEEK 1: 1 TAB ORALLY EACH AM
     Route: 048
     Dates: start: 20230317, end: 20230323
  2. CONTRAVE [Suspect]
     Active Substance: BUPROPION HYDROCHLORIDE\NALTREXONE HYDROCHLORIDE
     Dosage: STRENGTH 8/90 MG, WEEK 2: 1 TAB IN AM AND PM
     Route: 048
     Dates: start: 20230324, end: 20230330
  3. CONTRAVE [Suspect]
     Active Substance: BUPROPION HYDROCHLORIDE\NALTREXONE HYDROCHLORIDE
     Dosage: STRENGTH 8/90 MG, WEEK 3: 2 TABS EACH AM AND 1 TAB EACH PM
     Route: 048
     Dates: start: 20230331, end: 20230406
  4. CONTRAVE [Suspect]
     Active Substance: BUPROPION HYDROCHLORIDE\NALTREXONE HYDROCHLORIDE
     Dosage: STRENGTH 8/90 MG, WEEK 4: 2 TABS EACH AM AND PM
     Route: 048
     Dates: start: 20230407, end: 20230422

REACTIONS (3)
  - Depression [Unknown]
  - Fatigue [Unknown]
  - Nonspecific reaction [Unknown]

NARRATIVE: CASE EVENT DATE: 20230422
